FAERS Safety Report 7647468-5 (Version None)
Quarter: 2011Q3

REPORT INFORMATION
  Report Type: 
  Country: None (occurrence: None)
  Receive Date: 20110801
  Receipt Date: 20110719
  Transmission Date: 20111222
  Serious: Yes (Hospitalization)
  Sender: FDA-Public Use
  Company Number: US-UCBSA-037519

PATIENT
  Age: 19 Year
  Sex: Female

DRUGS (1)
  1. KEPPRA XR [Suspect]
     Dosage: 750

REACTIONS (1)
  - PNEUMONIA [None]
